FAERS Safety Report 14600434 (Version 1)
Quarter: 2018Q1

REPORT INFORMATION
  Report Type: Spontaneous
  Country: GB (occurrence: GB)
  Receive Date: 20180305
  Receipt Date: 20180305
  Transmission Date: 20180509
  Serious: Yes (Other)
  Sender: FDA-Public Use
  Company Number: GB-GLAXOSMITHKLINE-GB2018032262

PATIENT
  Age: 26 Week
  Sex: Male

DRUGS (2)
  1. RANITIDINE. [Suspect]
     Active Substance: RANITIDINE
     Indication: GASTROOESOPHAGEAL REFLUX DISEASE
     Dosage: 1.5 ML, QD
     Route: 048
     Dates: start: 20180126, end: 20180131
  2. INFANT GAVISCON (ALGINIC ACID + ALUMINIUM HYDROXIDE + MAGNESIUM TRISIL [Concomitant]
     Indication: PRODUCT USED FOR UNKNOWN INDICATION
     Dosage: UNK
     Route: 065
     Dates: start: 20180115, end: 20180126

REACTIONS (5)
  - Mucous stools [Recovered/Resolved]
  - Vomiting [Recovered/Resolved]
  - Screaming [Recovered/Resolved]
  - Diarrhoea [Recovered/Resolved]
  - Flatulence [Recovered/Resolved]

NARRATIVE: CASE EVENT DATE: 20180127
